FAERS Safety Report 5487929-0 (Version None)
Quarter: 2007Q4

REPORT INFORMATION
  Report Type: 
  Country: None (occurrence: None)
  Receive Date: 20071012
  Receipt Date: 20071012
  Transmission Date: 20080405
  Serious: Yes (Other)
  Sender: FDA-Public Use
  Company Number: None

PATIENT
  Sex: Male
  Weight: 112.4921 kg

DRUGS (2)
  1. FACTIVE [Suspect]
     Indication: INFECTION
     Dosage: 1 TABLET  DAILY  PO
     Route: 048
     Dates: start: 20071008, end: 20071011
  2. FACTIVE [Suspect]
     Indication: PULMONARY CONGESTION
     Dosage: 1 TABLET  DAILY  PO
     Route: 048
     Dates: start: 20071008, end: 20071011

REACTIONS (3)
  - PYREXIA [None]
  - RASH GENERALISED [None]
  - RASH PAPULAR [None]
